FAERS Safety Report 9580806 (Version 1)
Quarter: 2013Q4

REPORT INFORMATION
  Report Type: Spontaneous
  Country: BR (occurrence: BR)
  Receive Date: 20131002
  Receipt Date: 20131002
  Transmission Date: 20140711
  Serious: Yes (Other)
  Sender: FDA-Public Use
  Company Number: BR-PFIZER INC-2013278154

PATIENT
  Sex: Male

DRUGS (1)
  1. FRONTAL [Suspect]
     Indication: ANXIETY
     Dosage: 1  TABLET OF 0.5 MG EVERY 12 HOURS
     Route: 048
     Dates: start: 2006

REACTIONS (5)
  - Apparent death [Unknown]
  - Areflexia [Unknown]
  - Memory impairment [Unknown]
  - Intentional drug misuse [Unknown]
  - Drug ineffective [Unknown]
